FAERS Safety Report 15518187 (Version 1)
Quarter: 2018Q4

REPORT INFORMATION
  Report Type: Spontaneous
  Country: US (occurrence: US)
  Receive Date: 20181017
  Receipt Date: 20181017
  Transmission Date: 20190205
  Serious: Yes (Hospitalization)
  Sender: FDA-Public Use
  Company Number: US-JNJFOC-20181022469

PATIENT
  Sex: Male

DRUGS (1)
  1. INVOKANA [Suspect]
     Active Substance: CANAGLIFLOZIN
     Indication: TYPE 2 DIABETES MELLITUS
     Route: 048
     Dates: start: 20150912

REACTIONS (9)
  - Diabetic foot infection [Unknown]
  - Bandaemia [Unknown]
  - Acute kidney injury [Unknown]
  - Sepsis [Unknown]
  - Necrotising fasciitis [Unknown]
  - Gas gangrene [Unknown]
  - Limb amputation [Unknown]
  - Diabetic foot [Unknown]
  - Diabetes mellitus inadequate control [Unknown]

NARRATIVE: CASE EVENT DATE: 201609
